FAERS Safety Report 15669286 (Version 1)
Quarter: 2018Q4

REPORT INFORMATION
  Report Type: Spontaneous
  Country: BR (occurrence: BR)
  Receive Date: 20181129
  Receipt Date: 20181129
  Transmission Date: 20190205
  Serious: Yes (Death, Other)
  Sender: FDA-Public Use
  Company Number: BR-ROCHE-2218292

PATIENT
  Age: 36 Year
  Sex: Female

DRUGS (8)
  1. CLARITHROMYCIN. [Concomitant]
     Active Substance: CLARITHROMYCIN
  2. SOTALOL. [Concomitant]
     Active Substance: SOTALOL
  3. CEFTRIAXONE. [Suspect]
     Active Substance: CEFTRIAXONE
     Indication: PNEUMONIA
     Route: 065
  4. OSELTAMIVIR [Suspect]
     Active Substance: OSELTAMIVIR
     Indication: PNEUMONIA
     Route: 065
  5. FUROSEMIDE. [Concomitant]
     Active Substance: FUROSEMIDE
  6. MEROPENEM. [Concomitant]
     Active Substance: MEROPENEM
  7. ENOXAPARIN [Concomitant]
     Active Substance: ENOXAPARIN
     Route: 058
  8. CLARITHROMYCIN. [Concomitant]
     Active Substance: CLARITHROMYCIN

REACTIONS (5)
  - Cardiogenic shock [Unknown]
  - Mitral valve disease [Fatal]
  - Maternal exposure timing unspecified [Unknown]
  - Acute respiratory failure [Unknown]
  - Organising pneumonia [Fatal]
